FAERS Safety Report 10439386 (Version 2)
Quarter: 2014Q3

REPORT INFORMATION
  Report Type: Spontaneous
  Country: US (occurrence: US)
  Receive Date: 20140908
  Receipt Date: 20140908
  Transmission Date: 20150326
  Serious: No
  Sender: FDA-Public Use
  Company Number: US-BRISTOL-MYERS SQUIBB COMPANY-20615332

PATIENT
  Age: 90 Year
  Sex: Female

DRUGS (1)
  1. ABILIFY [Suspect]
     Active Substance: ARIPIPRAZOLE
     Dosage: PREVIOUS DOSE: 2MG AND 4MG

REACTIONS (3)
  - Sleep disorder [Unknown]
  - Drug prescribing error [Unknown]
  - Adverse event [Unknown]
